FAERS Safety Report 8177603-4 (Version None)
Quarter: 2012Q1

REPORT INFORMATION
  Report Type: 
  Country: None (occurrence: None)
  Receive Date: 20120301
  Receipt Date: 20120221
  Transmission Date: 20120608
  Serious: Yes (Other)
  Sender: FDA-Public Use
  Company Number: PHHY2012DE015218

PATIENT
  Age: 74 Year
  Sex: Female

DRUGS (5)
  1. ENALAPRIL MALEATE [Concomitant]
  2. RASILEZ [Suspect]
     Dosage: 1 DF, UNK
     Dates: start: 20110601
  3. NITRENDIPIN [Concomitant]
  4. METOPROLOL SUCCINATE [Concomitant]
  5. SPIRONOLACTONE [Concomitant]

REACTIONS (3)
  - CARDIAC FAILURE [None]
  - PULMONARY OEDEMA [None]
  - RENAL FAILURE [None]
